FAERS Safety Report 8448999-0 (Version None)
Quarter: 2012Q2

REPORT INFORMATION
  Report Type: 
  Country: None (occurrence: None)
  Receive Date: 20120619
  Receipt Date: 20120614
  Transmission Date: 20120825
  Serious: Yes (Death, Life-Threatening, Hospitalization)
  Sender: FDA-Public Use
  Company Number: US-SANOFI-AVENTIS-2012SA043159

PATIENT

DRUGS (11)
  1. ASPIRIN [Concomitant]
  2. HYDROCHLOROTHIAZIDE [Concomitant]
  3. CITRACAL [Concomitant]
  4. OS-CAL D [Concomitant]
  5. ALENDRONATE SODIUM [Concomitant]
  6. CYCLOPHOSPHAMIDE [Suspect]
     Indication: BREAST CANCER
     Route: 065
     Dates: start: 20100601, end: 20100914
  7. VITAMIN D [Concomitant]
  8. LISINOPRIL [Concomitant]
  9. DOCETAXEL [Suspect]
     Indication: BREAST CANCER
     Route: 065
     Dates: start: 20100601, end: 20100914
  10. BEVACIZUMAB [Suspect]
     Indication: BREAST CANCER
     Route: 065
     Dates: start: 20100601, end: 20110112
  11. LEVOTHYROXINE SODIUM [Concomitant]

REACTIONS (4)
  - ACUTE MYOCARDIAL INFARCTION [None]
  - INVESTIGATION ABNORMAL [None]
  - PULMONARY EMBOLISM [None]
  - LEFT VENTRICULAR DYSFUNCTION [None]
